FAERS Safety Report 6144589-3 (Version None)
Quarter: 2009Q2

REPORT INFORMATION
  Report Type: 
  Country: None (occurrence: None)
  Receive Date: 20090401
  Receipt Date: 20090319
  Transmission Date: 20091009
  Serious: Yes (Other)
  Sender: FDA-Public Use
  Company Number: 2009PV000027

PATIENT
  Age: 73 Year
  Sex: Female

DRUGS (5)
  1. DEPOCYT [Suspect]
     Indication: LYMPHOMA
     Dosage: 50 MG; INTH
     Route: 037
     Dates: start: 20081222, end: 20090202
  2. CYCLOPHOSPHAMIDE (CON.) [Concomitant]
  3. VINCRISTINE (CON.) [Concomitant]
  4. DOXORUBICIN (CON.) [Concomitant]
  5. PREDNISONE (CON.) [Concomitant]

REACTIONS (6)
  - ANAL SPHINCTER ATONY [None]
  - DISEASE PROGRESSION [None]
  - FAECAL INCONTINENCE [None]
  - HYPOAESTHESIA [None]
  - LYMPHOMA [None]
  - NEUROTOXICITY [None]
